FAERS Safety Report 7744469-3 (Version None)
Quarter: 2011Q3

REPORT INFORMATION
  Report Type: 
  Country: None (occurrence: None)
  Receive Date: 20110912
  Receipt Date: 20110901
  Transmission Date: 20111222
  Serious: Yes (Other)
  Sender: FDA-Public Use
  Company Number: CHPA2011JP11395

PATIENT

DRUGS (1)
  1. SLOW-FE [Suspect]
     Dosage: UNK, UNK
     Route: 048

REACTIONS (2)
  - IRON OVERLOAD [None]
  - MELANOSIS [None]
